FAERS Safety Report 12271437 (Version 4)
Quarter: 2019Q1

REPORT INFORMATION
  Report Type: Report from Study
  Country: CA (occurrence: CA)
  Receive Date: 20160415
  Receipt Date: 20190211
  Transmission Date: 20190417
  Serious: Yes (Other)
  Sender: FDA-Public Use
  Company Number: CA-AMGEN-CANSL2015104298

PATIENT
  Age: 71 Year
  Sex: Female

DRUGS (7)
  1. OXYCODON [Concomitant]
     Active Substance: OXYCODONE
  2. SILICEA [Concomitant]
     Active Substance: SILICON DIOXIDE
  3. VITAMIN D [Concomitant]
     Active Substance: CHOLECALCIFEROL
     Dosage: UNK
  4. CALCIUM [Concomitant]
     Active Substance: CALCIUM
     Dosage: UNK
  5. MAGNESIUM [Concomitant]
     Active Substance: MAGNESIUM
     Dosage: UNK
  6. TYLENOL [Concomitant]
     Active Substance: ACETAMINOPHEN
  7. PROLIA [Suspect]
     Active Substance: DENOSUMAB
     Indication: OSTEOPOROSIS POSTMENOPAUSAL
     Dosage: 60 MG, Q6MO
     Route: 058
     Dates: start: 20140217

REACTIONS (33)
  - Lumbar vertebral fracture [Unknown]
  - Skin irritation [Unknown]
  - Mouth ulceration [Recovering/Resolving]
  - Ear infection [Unknown]
  - Dental caries [Unknown]
  - Vaginal infection [Unknown]
  - Spinal pain [Unknown]
  - Renal disorder [Unknown]
  - Rash pruritic [Recovering/Resolving]
  - Arthritis [Unknown]
  - Joint range of motion decreased [Unknown]
  - Bronchitis [Not Recovered/Not Resolved]
  - Weight decreased [Not Recovered/Not Resolved]
  - Blister [Unknown]
  - Burning sensation [Unknown]
  - Vitamin B12 increased [Not Recovered/Not Resolved]
  - Rash erythematous [Recovering/Resolving]
  - Sleep disorder due to general medical condition, insomnia type [Unknown]
  - Gastrointestinal disorder [Unknown]
  - Pain in extremity [Not Recovered/Not Resolved]
  - Rash [Not Recovered/Not Resolved]
  - Nervousness [Unknown]
  - Cyst [Unknown]
  - Decreased immune responsiveness [Unknown]
  - Urinary tract infection [Unknown]
  - Osteoarthritis [Recovering/Resolving]
  - Spinal fracture [Unknown]
  - Hand fracture [Unknown]
  - Adverse drug reaction [Unknown]
  - Dry mouth [Unknown]
  - Exostosis [Unknown]
  - Immunoglobulins increased [Not Recovered/Not Resolved]
  - Inflammation [Not Recovered/Not Resolved]

NARRATIVE: CASE EVENT DATE: 2014
